FAERS Safety Report 7266149-3 (Version None)
Quarter: 2011Q1

REPORT INFORMATION
  Report Type: 
  Country: None (occurrence: None)
  Receive Date: 20110131
  Receipt Date: 20110125
  Transmission Date: 20110831
  Serious: Yes (Death, Hospitalization, Other)
  Sender: FDA-Public Use
  Company Number: US-ASTRAZENECA-2009SE25051

PATIENT
  Age: 80 Year
  Sex: Female

DRUGS (3)
  1. TOPROL-XL [Suspect]
     Route: 048
  2. LIPITOR [Suspect]
     Route: 065
  3. CRESTOR [Suspect]
     Route: 048

REACTIONS (5)
  - HIP FRACTURE [None]
  - FALL [None]
  - INJURY [None]
  - HIP ARTHROPLASTY [None]
  - MYOCARDIAL INFARCTION [None]
